FAERS Safety Report 5589733-1 (Version None)
Quarter: 2007Q4

REPORT INFORMATION
  Report Type: 
  Country: None (occurrence: None)
  Receive Date: 20071212
  Receipt Date: 20070720
  Transmission Date: 20080405
  Serious: Yes (Death)
  Sender: FDA-Public Use
  Company Number: USA-2007-0028470

PATIENT
  Age: 20 Year
  Sex: Male
  Weight: 65.5 kg

DRUGS (10)
  1. OXYCONTIN [Suspect]
     Indication: DRUG ABUSER
  2. DIAZEPAM [Suspect]
     Indication: DRUG USE FOR UNKNOWN INDICATION
  3. PROPOXYPHENE (DEXTROPROPOXYPHENE) [Suspect]
     Indication: DRUG USE FOR UNKNOWN INDICATION
  4. TEMAZEPAM [Suspect]
     Indication: DRUG USE FOR UNKNOWN INDICATION
  5. CITALOPRAM HYDROBROMIDE [Suspect]
     Indication: DRUG USE FOR UNKNOWN INDICATION
  6. CYCLOBENZAPRINE [Suspect]
     Indication: DRUG USE FOR UNKNOWN INDICATION
  7. OXYMORPHONE (OXYMORPHONE) [Suspect]
     Indication: DRUG USE FOR UNKNOWN INDICATION
  8. OXAZEPAM [Suspect]
     Indication: DRUG USE FOR UNKNOWN INDICATION
  9. ALPRAZOLAM [Suspect]
     Indication: DRUG USE FOR UNKNOWN INDICATION
  10. ACETAMINOPHEN [Suspect]
     Indication: DRUG USE FOR UNKNOWN INDICATION

REACTIONS (3)
  - MULTIPLE DRUG OVERDOSE ACCIDENTAL [None]
  - SEDATION [None]
  - SUBSTANCE ABUSE [None]
